FAERS Safety Report 25962154 (Version 1)
Quarter: 2025Q4

REPORT INFORMATION
  Report Type: Spontaneous
  Country: US (occurrence: None)
  Receive Date: 20251024
  Receipt Date: 20251024
  Transmission Date: 20260117
  Serious: No
  Sender: FDA-CTU
  Company Number: None

PATIENT
  Sex: Female

DRUGS (1)
  1. ZURZUVAE [Suspect]
     Active Substance: ZURANOLONE
     Indication: Perinatal depression
     Dosage: 50 MG AT BEDFTIME ORAL
     Route: 048

REACTIONS (4)
  - Non-small cell lung cancer stage IV [None]
  - Migraine [None]
  - Therapy cessation [None]
  - Therapy change [None]
